FAERS Safety Report 8422421-2 (Version None)
Quarter: 2012Q2

REPORT INFORMATION
  Report Type: 
  Country: None (occurrence: None)
  Receive Date: 20120608
  Receipt Date: 20120530
  Transmission Date: 20120825
  Serious: Yes (Hospitalization)
  Sender: FDA-Public Use
  Company Number: US-PERRIGO-12US004790

PATIENT
  Age: 68 Year
  Sex: Male
  Weight: 72.562 kg

DRUGS (1)
  1. TUSSIN PE CF LIQ 516 [Suspect]
     Indication: INTENTIONAL OVERDOSE
     Dosage: 240 ML, SINGLE
     Route: 048
     Dates: start: 20120530, end: 20120530

REACTIONS (1)
  - OVERDOSE [None]
